FAERS Safety Report 10608088 (Version 4)
Quarter: 2015Q1

REPORT INFORMATION
  Report Type: Spontaneous
  Country: US (occurrence: US)
  Receive Date: 20141125
  Receipt Date: 20150323
  Transmission Date: 20150720
  Serious: Yes (Other)
  Sender: FDA-Public Use
  Company Number: US-PFIZER INC-2014322440

PATIENT
  Age: 48 Year
  Sex: Male
  Weight: 84 kg

DRUGS (13)
  1. CARDIZEM LA [Concomitant]
     Active Substance: DILTIAZEM HYDROCHLORIDE
     Dosage: 420 MG TABLET EXTENDED RELEASE 24 HOUR 1 TABLET AT THE SAME TIME EACH DAY ONCE A DAY
  2. OXYCONTIN [Concomitant]
     Active Substance: OXYCODONE HYDROCHLORIDE
     Indication: PAIN
     Dosage: 20 MG 1 TABLET ONCE DAILY
  3. PERCOCET [Concomitant]
     Active Substance: ACETAMINOPHEN\OXYCODONE HYDROCHLORIDE
     Indication: PAIN
  4. METAXALONE. [Concomitant]
     Active Substance: METAXALONE
     Dosage: 800 MG TABLET 1 TABLET THREE TIMES A DAY
  5. LORTAB [Concomitant]
     Active Substance: ACETAMINOPHEN\HYDROCODONE BITARTRATE
     Indication: PAIN
     Dosage: UNK
  6. TYLENOL WITH CODEINE [Concomitant]
     Active Substance: ACETAMINOPHEN\CODEINE PHOSPHATE
     Indication: PAIN
  7. CELEBREX [Suspect]
     Active Substance: CELECOXIB
     Indication: PAIN
     Dosage: 200 MG, 1X/DAY (PRN) DAILY WITH FOOD
     Route: 048
     Dates: start: 20141020, end: 20141031
  8. CELEBREX [Interacting]
     Active Substance: CELECOXIB
     Dosage: 200 MG, 1X/DAY (PRN) DAILY WITH FOOD
     Route: 048
     Dates: start: 20141103, end: 201411
  9. NEXIUM [Concomitant]
     Active Substance: ESOMEPRAZOLE MAGNESIUM
     Dosage: 40 MG CAPSULE DELAYED RELEASE 1 CAPSULE ONCE A DAY
  10. BENICAR [Concomitant]
     Active Substance: OLMESARTAN MEDOXOMIL
     Dosage: 20 MG TABLET
  11. OXYCODONE HYDROCHLORIDE. [Concomitant]
     Active Substance: OXYCODONE HYDROCHLORIDE
     Indication: PAIN
     Dosage: 15 MG 1 TABLET TWICE DAILY AS NEEDED
  12. CELEBREX [Interacting]
     Active Substance: CELECOXIB
     Indication: ARTHRALGIA
     Dosage: 200 MG, 1X/DAY (PRN) DAILY WITH FOOD
     Route: 048
  13. VALIUM [Concomitant]
     Active Substance: DIAZEPAM
     Dosage: 5 MG TABLET 1 TABLET AS NEEDED TWICE A DAY

REACTIONS (6)
  - Genital blister [Recovered/Resolved]
  - Drug hypersensitivity [Recovering/Resolving]
  - Blister [Recovered/Resolved]
  - Rash [Recovered/Resolved]
  - Urticaria [Recovering/Resolving]
  - Alcohol interaction [Recovering/Resolving]

NARRATIVE: CASE EVENT DATE: 20141103
